FAERS Safety Report 11321752 (Version 4)
Quarter: 2015Q3

REPORT INFORMATION
  Report Type: Spontaneous
  Country: CN (occurrence: CN)
  Receive Date: 20150729
  Receipt Date: 20150925
  Transmission Date: 20151125
  Serious: Yes (Hospitalization)
  Sender: FDA-Public Use
  Company Number: CN-ASTRAZENECA-2015SE72341

PATIENT
  Age: 56 Year
  Sex: Female

DRUGS (1)
  1. IRESSA [Suspect]
     Active Substance: GEFITINIB
     Route: 048
     Dates: start: 20130308, end: 201502

REACTIONS (10)
  - Intervertebral disc protrusion [Recovered/Resolved]
  - Pyrexia [Not Recovered/Not Resolved]
  - Intentional product misuse [Unknown]
  - Gait disturbance [Unknown]
  - Pleural effusion [Recovering/Resolving]
  - Pain in extremity [Unknown]
  - Speech disorder [Unknown]
  - Peripheral coldness [Not Recovered/Not Resolved]
  - Cough [Recovered/Resolved]
  - Hypoaesthesia [Not Recovered/Not Resolved]

NARRATIVE: CASE EVENT DATE: 2015
